FAERS Safety Report 23342348 (Version 1)
Quarter: 2023Q4

REPORT INFORMATION
  Report Type: Spontaneous
  Country: US (occurrence: US)
  Receive Date: 20231227
  Receipt Date: 20231227
  Transmission Date: 20240110
  Serious: Yes (Other)
  Sender: FDA-Public Use
  Company Number: US-BRAINTREE LABORATORIES, INC.-2023BTE00917

PATIENT
  Age: 51 Year
  Sex: Female
  Weight: 122.45 kg

DRUGS (6)
  1. SODIUM SULFATE, POTASSIUM SULFATE, MAGNESIUM SULFATE [Suspect]
     Active Substance: MAGNESIUM SULFATE\POTASSIUM SULFATE\SODIUM SULFATE
     Indication: Colonoscopy
     Dosage: 1 X 6 OZ. BOTTLE, 1X
     Route: 048
     Dates: start: 20231212, end: 20231212
  2. VITAMIN D NOS [Concomitant]
     Active Substance: VITAMIN D NOS
  3. MAGNESIUM [Concomitant]
     Active Substance: MAGNESIUM
  4. ZYRTEC [Concomitant]
     Active Substance: CETIRIZINE HYDROCHLORIDE
  5. HYDROCHLOROTHIAZIDE [Concomitant]
     Active Substance: HYDROCHLOROTHIAZIDE
  6. DULOXETINE [Concomitant]
     Active Substance: DULOXETINE

REACTIONS (16)
  - Seizure [Unknown]
  - Syncope [Recovered/Resolved]
  - Flatulence [Recovered/Resolved]
  - Head injury [Not Recovered/Not Resolved]
  - Concussion [Unknown]
  - Joint injury [Not Recovered/Not Resolved]
  - Red blood cell count increased [Unknown]
  - Blood glucose increased [Unknown]
  - Dizziness [Not Recovered/Not Resolved]
  - Tooth fracture [Not Recovered/Not Resolved]
  - Device physical property issue [Not Recovered/Not Resolved]
  - Chest injury [Not Recovered/Not Resolved]
  - Neck injury [Not Recovered/Not Resolved]
  - Headache [Not Recovered/Not Resolved]
  - Pain [Not Recovered/Not Resolved]
  - Vomiting [Recovered/Resolved]

NARRATIVE: CASE EVENT DATE: 20231212
